FAERS Safety Report 23114979 (Version 1)
Quarter: 2023Q4

REPORT INFORMATION
  Report Type: Spontaneous
  Country: CN (occurrence: CN)
  Receive Date: 20231027
  Receipt Date: 20231027
  Transmission Date: 20240110
  Serious: Yes (Hospitalization)
  Sender: FDA-Public Use
  Company Number: CN-BAYER-2023A153660

PATIENT
  Age: 46 Year
  Sex: Male
  Weight: 75 kg

DRUGS (4)
  1. GLUCOBAY [Suspect]
     Active Substance: ACARBOSE
     Indication: Diabetes mellitus
     Dosage: 50 MG, TID
     Route: 048
     Dates: start: 20230928, end: 20230930
  2. ALPHA LIPOIC ACID [Concomitant]
     Active Substance: .ALPHA.-LIPOIC ACID
     Indication: Antioxidant therapy
     Dosage: UNK
     Dates: start: 20230926
  3. EPALRESTAT [Concomitant]
     Active Substance: EPALRESTAT
     Indication: Metabolic disorder
     Dosage: UNK
     Dates: start: 20230926
  4. METHYLCOBALAMIN [Concomitant]
     Active Substance: METHYLCOBALAMIN
     Indication: Nervous system disorder
     Dosage: UNK
     Dates: start: 20230926

REACTIONS (2)
  - Abdominal distension [Recovered/Resolved]
  - Flatulence [Recovered/Resolved]

NARRATIVE: CASE EVENT DATE: 20230930
